FAERS Safety Report 8875724 (Version 1)
Quarter: 2012Q4

REPORT INFORMATION
  Report Type: 
  Country: US (occurrence: US)
  Receive Date: 20121023
  Receipt Date: 20121023
  Transmission Date: 20130627
  Serious: Yes (Other)
  Sender: FDA-Public Use
  Company Number: US-JNJFOC-20121011129

PATIENT

DRUGS (5)
  1. ZYRTEC [Suspect]
     Route: 065
  2. ZYRTEC [Suspect]
     Indication: PRODUCT USED FOR UNKNOWN INDICATION
     Route: 065
     Dates: start: 2009
  3. ANTIBIOTICS [Suspect]
     Indication: PRODUCT USED FOR UNKNOWN INDICATION
     Route: 065
  4. VITAMIN C [Concomitant]
     Route: 065
  5. NON THERAPEUTIC PRODUCT [Concomitant]
     Route: 065

REACTIONS (8)
  - Withdrawal syndrome [Unknown]
  - Feeling abnormal [Unknown]
  - Sinusitis [Unknown]
  - Headache [Unknown]
  - Epistaxis [Unknown]
  - Dizziness [Unknown]
  - Rhinalgia [Unknown]
  - Nasal dryness [Unknown]
